FAERS Safety Report 6646628-X (Version None)
Quarter: 2010Q1

REPORT INFORMATION
  Report Type: 
  Country: None (occurrence: None)
  Receive Date: 20100322
  Receipt Date: 20100322
  Transmission Date: 20100710
  Serious: Yes (Hospitalization)
  Sender: FDA-Public Use
  Company Number: None

PATIENT
  Age: 55 Year
  Sex: Male

DRUGS (1)
  1. SUMATRIPTAN SUCCINATE [Suspect]
     Indication: MIGRAINE
     Dosage: 0.5 ML ONCE SQ
     Route: 058

REACTIONS (5)
  - ANGINA PECTORIS [None]
  - CHEST PAIN [None]
  - HYPERTENSION [None]
  - SEDATION [None]
  - SOMNOLENCE [None]
